FAERS Safety Report 14874299 (Version 1)
Quarter: 2018Q2

REPORT INFORMATION
  Report Type: Report from Study
  Country: AT (occurrence: AT)
  Receive Date: 20180510
  Receipt Date: 20180510
  Transmission Date: 20180711
  Serious: Yes (Hospitalization)
  Sender: FDA-Public Use
  Company Number: AT-ROCHE-2120665

PATIENT
  Age: 42 Year
  Sex: Female
  Weight: 49 kg

DRUGS (19)
  1. TRASTUZUMAB. [Suspect]
     Active Substance: TRASTUZUMAB
     Indication: BREAST CANCER
     Dosage: MOST RECENT DOSE PRIOR TO THE EVENT: 17/OCT/2017
     Route: 042
     Dates: start: 20170926, end: 20170926
  2. PERTUZUMAB. [Suspect]
     Active Substance: PERTUZUMAB
     Indication: BREAST CANCER
     Dosage: MOST RECENT DOSE PRIOR TO THE EVENT: 17/OCT/2017
     Route: 042
     Dates: start: 20170926, end: 20170926
  3. DIBONDRIN [Concomitant]
     Active Substance: DIPHENHYDRAMINE HYDROCHLORIDE
     Route: 065
     Dates: start: 20170926
  4. ANTHOZYM PETRASCH JUICE [Concomitant]
     Route: 065
     Dates: start: 20170615
  5. SPIRULINA [Concomitant]
     Active Substance: SPIRULINA
     Route: 065
     Dates: start: 20170615
  6. LONQUEX [Concomitant]
     Active Substance: LIPEGFILGRASTIM
     Route: 065
     Dates: start: 20170926
  7. FORTECORTIN [Concomitant]
     Active Substance: DEXAMETHASONE
     Dosage: ONGOING = CHECKED
     Route: 065
     Dates: start: 20170926
  8. XANOR [Concomitant]
     Active Substance: ALPRAZOLAM
     Route: 065
     Dates: start: 20170926
  9. LOVENOX [Concomitant]
     Active Substance: ENOXAPARIN SODIUM
     Route: 065
     Dates: start: 20171125
  10. EMEND [Concomitant]
     Active Substance: APREPITANT
     Route: 065
     Dates: start: 20171017
  11. FORTECORTIN [Concomitant]
     Active Substance: DEXAMETHASONE
     Dosage: ONGOING = CHECKED
     Route: 065
     Dates: start: 20170926
  12. NOVALGIN (AUSTRIA) [Concomitant]
     Route: 065
  13. ENTEROBENE [Concomitant]
     Route: 065
  14. DUROTIV [Concomitant]
     Active Substance: ESOMEPRAZOLE
     Route: 065
     Dates: start: 20170925
  15. DOCETAXEL. [Suspect]
     Active Substance: DOCETAXEL
     Indication: BREAST CANCER
     Route: 042
     Dates: start: 20170926, end: 20180109
  16. ZOFRAN [Concomitant]
     Active Substance: ONDANSETRON HYDROCHLORIDE
     Route: 065
     Dates: start: 20170926
  17. ZOFRAN [Concomitant]
     Active Substance: ONDANSETRON HYDROCHLORIDE
     Dosage: ONGOING = CHECKED
     Route: 065
     Dates: start: 20170926
  18. FORTECORTIN [Concomitant]
     Active Substance: DEXAMETHASONE
     Route: 065
     Dates: start: 20170929
  19. GLANDOMED [Concomitant]
     Route: 065
     Dates: start: 20170926

REACTIONS (1)
  - Febrile infection [Recovered/Resolved]

NARRATIVE: CASE EVENT DATE: 20180121
